FAERS Safety Report 9185501 (Version 1)
Quarter: 2013Q1

REPORT INFORMATION
  Report Type: Report from Study
  Country: CA (occurrence: CA)
  Receive Date: 20130325
  Receipt Date: 20130325
  Transmission Date: 20140127
  Serious: Yes (Other)
  Sender: FDA-Public Use
  Company Number: CA-JNJFOC-20130308552

PATIENT
  Age: 79 Year
  Sex: Male
  Weight: 75.3 kg

DRUGS (10)
  1. REMICADE [Suspect]
     Indication: RHEUMATOID ARTHRITIS
     Route: 042
     Dates: start: 20091203
  2. FOLIC ACID [Concomitant]
     Route: 065
  3. METHOTREXATE [Concomitant]
     Route: 065
  4. CITALOPRAM [Concomitant]
     Route: 065
  5. PANTOLOC [Concomitant]
     Route: 065
  6. VENTOLIN [Concomitant]
     Route: 065
  7. ASA [Concomitant]
     Route: 065
  8. POTASSIUM [Concomitant]
     Route: 065
  9. ADVAIR [Concomitant]
     Route: 065
  10. FLOMAX [Concomitant]
     Route: 065

REACTIONS (4)
  - Fall [Recovered/Resolved]
  - Excoriation [Unknown]
  - Musculoskeletal pain [Unknown]
  - Back pain [Unknown]
